FAERS Safety Report 8113854-2 (Version None)
Quarter: 2012Q1

REPORT INFORMATION
  Report Type: 
  Country: None (occurrence: None)
  Receive Date: 20120203
  Receipt Date: 20120202
  Transmission Date: 20120608
  Serious: Yes (Death, Other)
  Sender: FDA-Public Use
  Company Number: PHFR2010GB05334

PATIENT
  Sex: Female

DRUGS (3)
  1. SERTRALINE HYDROCHLORIDE [Concomitant]
     Indication: ANXIETY
     Dosage: 150 MG, DAILY
     Route: 048
  2. CLOZARIL [Suspect]
     Indication: SCHIZOPHRENIA
     Dosage: 300 MG/DAY
     Route: 048
     Dates: start: 20081023
  3. CLOZAPINE [Concomitant]

REACTIONS (4)
  - PULMONARY EMBOLISM [None]
  - PNEUMONIA [None]
  - CHEST PAIN [None]
  - DEEP VEIN THROMBOSIS [None]
